FAERS Safety Report 6566297-7 (Version None)
Quarter: 2010Q1

REPORT INFORMATION
  Report Type: 
  Country: None (occurrence: None)
  Receive Date: 20100202
  Receipt Date: 20100121
  Transmission Date: 20100710
  Serious: Yes (Other)
  Sender: FDA-Public Use
  Company Number: US-PFIZER INC-2010009581

PATIENT
  Sex: Female
  Weight: 105.23 kg

DRUGS (2)
  1. SUTENT [Suspect]
     Indication: METASTATIC RENAL CELL CARCINOMA
     Dosage: 50 MG, 1X/DAY
     Route: 048
     Dates: start: 20091001, end: 20100120
  2. FERROUS SULFATE TAB [Concomitant]
     Dosage: TWICE DAILY

REACTIONS (2)
  - NASAL CONGESTION [None]
  - NASAL SEPTUM PERFORATION [None]
